FAERS Safety Report 6163385-4 (Version None)
Quarter: 2009Q2

REPORT INFORMATION
  Report Type: 
  Country: None (occurrence: None)
  Receive Date: 20090420
  Receipt Date: 20090420
  Transmission Date: 20091009
  Serious: No
  Sender: FDA-Public Use
  Company Number: None

PATIENT
  Age: 52 Year
  Sex: Male
  Weight: 118.3 kg

DRUGS (20)
  1. VARENICLINE [Suspect]
     Indication: SMOKING CESSATION THERAPY
     Dosage: 1 MG BID PO
     Route: 048
     Dates: start: 20080131, end: 20080301
  2. ALBUTEROL/IPRATROPIUM ORAL INHALER [Concomitant]
  3. CIPROFLOXACIN-DEXAMETH OTIC SUSP [Concomitant]
  4. CLONAZEPAM [Concomitant]
  5. DOXEPIN HCL [Concomitant]
  6. FLUNISOLIDE NASAL SOLN [Concomitant]
  7. FREESTYLE BLOOD GLUCOSE TEST STRIP [Concomitant]
  8. FUROSEMIDE [Concomitant]
  9. GLYBURIDE [Concomitant]
  10. IMIQUIMOD TOPICAL CR [Concomitant]
  11. INSULIN NPH (HUMAN) INJ (NOVO) [Concomitant]
  12. LORATADINE [Concomitant]
  13. METFORMIN HCL [Concomitant]
  14. METOPROLOL TARTRATE [Concomitant]
  15. OMEPRAZOLE [Concomitant]
  16. POTASSIUM CHLORIDE [Concomitant]
  17. SENNOSIDES [Concomitant]
  18. SIMVASTATIN [Concomitant]
  19. TRAMADOL HCL [Concomitant]
  20. VALSARTAN/HCTZ [Concomitant]

REACTIONS (3)
  - ABNORMAL DREAMS [None]
  - DEPRESSION [None]
  - SUICIDAL IDEATION [None]
